FAERS Safety Report 5271792-7 (Version None)
Quarter: 2007Q1

REPORT INFORMATION
  Report Type: 
  Country: None (occurrence: None)
  Receive Date: 20070321
  Receipt Date: 20070309
  Transmission Date: 20070707
  Serious: Yes (Other)
  Sender: FDA-Public Use
  Company Number: CH-PFIZER INC-2007019103

PATIENT
  Sex: Male

DRUGS (3)
  1. LYRICA [Suspect]
     Indication: BURNING SENSATION
     Route: 048
  2. LYRICA [Suspect]
     Indication: NEUROMA
  3. LYRICA [Suspect]
     Indication: NEURALGIA

REACTIONS (2)
  - PALPITATIONS [None]
  - SINUS TACHYCARDIA [None]
